FAERS Safety Report 17026850 (Version 1)
Quarter: 2019Q4

REPORT INFORMATION
  Report Type: Spontaneous
  Country: US (occurrence: US)
  Receive Date: 20191112
  Receipt Date: 20191112
  Transmission Date: 20200122
  Serious: Yes (Hospitalization)
  Sender: FDA-Public Use
  Company Number: None

PATIENT
  Age: 66 Year
  Sex: Male

DRUGS (17)
  1. NASONEX 50 MCG [Concomitant]
  2. BUDESONIDE 0.5 MG/2 ML VIALS [Concomitant]
  3. LYRICA [Concomitant]
     Active Substance: PREGABALIN
  4. ZOFRAN 4 MG PRN [Concomitant]
  5. ZOLPIDEM [Concomitant]
     Active Substance: ZOLPIDEM TARTRATE
  6. PREVACID SOLUTAB 15 MG [Concomitant]
  7. METOPROLOL TARTRATE 100 MG [Concomitant]
     Active Substance: METOPROLOL TARTRATE
  8. PANTOPRAZOLE 40 MG [Concomitant]
     Active Substance: PANTOPRAZOLE SODIUM
  9. METHOCARBAMOL 500 MG [Concomitant]
     Active Substance: METHOCARBAMOL
  10. TERAZOSIN 1 MG [Concomitant]
  11. VOTRIENT [Suspect]
     Active Substance: PAZOPANIB HYDROCHLORIDE
     Indication: RENAL CELL CARCINOMA
     Dosage: ?          OTHER ROUTE:VIA G TUBE?
     Dates: start: 20181122
  12. LORAZEPAM 1 MG [Concomitant]
     Active Substance: LORAZEPAM
  13. SPIRIVA [Concomitant]
     Active Substance: TIOTROPIUM BROMIDE MONOHYDRATE
  14. VITAMIN D 1,000 U [Concomitant]
  15. PROAIR HFA [Concomitant]
     Active Substance: ALBUTEROL SULFATE
  16. OXYCODONE IR 20 MG [Concomitant]
  17. FENTANYL 75 MCG/H [Concomitant]

REACTIONS (2)
  - Pneumonia aspiration [None]
  - Therapy cessation [None]

NARRATIVE: CASE EVENT DATE: 20191001
